FAERS Safety Report 13397814 (Version 1)
Quarter: 2017Q2

REPORT INFORMATION
  Report Type: Spontaneous
  Country: DE (occurrence: DE)
  Receive Date: 20170403
  Receipt Date: 20170403
  Transmission Date: 20170830
  Serious: Yes (Life-Threatening)
  Sender: FDA-Public Use
  Company Number: DE-PFIZER INC-99H-062-0085266-00

PATIENT
  Age: 6 Day
  Sex: Male
  Weight: 2.39 kg

DRUGS (3)
  1. CEFOTAXIME [Concomitant]
     Active Substance: CEFOTAXIME SODIUM
     Indication: CONGENITAL PNEUMONIA
     Dosage: 100 MG/KG, DAILY
  2. PIPERACILLIN [Concomitant]
     Active Substance: PIPERACILLIN
     Indication: CONGENITAL PNEUMONIA
     Dosage: 100 MG/KG, DAILY
  3. VANCOMYCIN HCL [Suspect]
     Active Substance: VANCOMYCIN HYDROCHLORIDE
     Indication: CONGENITAL PNEUMONIA
     Dosage: 35 MG/KG, SINGLE 1-MIN DOSE
     Route: 042

REACTIONS (11)
  - Metabolic acidosis [Recovered/Resolved]
  - Hypoxia [Recovered/Resolved]
  - Bradycardia [Recovered/Resolved]
  - Proteinuria [Recovered/Resolved]
  - Beta-N-acetyl-D-glucosaminidase abnormal [Recovered/Resolved]
  - Accidental overdose [Recovered/Resolved]
  - Red man syndrome [Recovered/Resolved]
  - Apnoea [Recovered/Resolved]
  - Blood pressure systolic decreased [Recovered/Resolved]
  - Cyanosis [Unknown]
  - Flushing [Recovered/Resolved]
